FAERS Safety Report 17113465 (Version 1)
Quarter: 2019Q4

REPORT INFORMATION
  Report Type: Spontaneous
  Country: CA (occurrence: CA)
  Receive Date: 20191205
  Receipt Date: 20191205
  Transmission Date: 20200122
  Serious: Yes (Other)
  Sender: FDA-Public Use
  Company Number: CA-AUROBINDO-AUR-APL-2019-076077

PATIENT
  Age: 58 Year
  Sex: Male
  Weight: 68 kg

DRUGS (7)
  1. VENLAFAXINE XR [Concomitant]
     Active Substance: VENLAFAXINE HYDROCHLORIDE
     Indication: DEPRESSION
     Dosage: 75 MILLIGRAM, ONCE A DAY
     Route: 048
  2. QUETIAPINE FILM-COATED TABLET [Suspect]
     Active Substance: QUETIAPINE
     Dosage: 25 MILLIGRAM, 3 TIMES A DAY
     Route: 048
  3. LORAZEPAM. [Concomitant]
     Active Substance: LORAZEPAM
     Indication: FEELING ABNORMAL
     Dosage: 2 MILLIGRAM
     Route: 048
  4. QUETIAPINE FILM-COATED TABLET [Suspect]
     Active Substance: QUETIAPINE
     Indication: SLEEP DISORDER
     Dosage: 200 MILLIGRAM, ONCE A DAY
     Route: 048
  5. QUETIAPINE FILM-COATED TABLET [Suspect]
     Active Substance: QUETIAPINE
     Dosage: 300 MILLIGRAM, ONCE A DAY
     Route: 048
  6. QUETIAPINE FILM-COATED TABLET [Suspect]
     Active Substance: QUETIAPINE
     Indication: WEIGHT DECREASED
     Dosage: 100 MILLIGRAM, ONCE A DAY
     Route: 048
  7. ZOPICLONE [Concomitant]
     Active Substance: ZOPICLONE
     Indication: SLEEP DISORDER
     Dosage: 7.5 MILLIGRAM, ONCE A DAY
     Route: 048

REACTIONS (9)
  - Loss of consciousness [Unknown]
  - Weight increased [Unknown]
  - Cyst [Unknown]
  - Haemorrhage [Unknown]
  - Jaw fracture [Unknown]
  - Fall [Unknown]
  - Blood pressure decreased [Unknown]
  - Joint stiffness [Unknown]
  - Weight decreased [Unknown]
